FAERS Safety Report 22658690 (Version 1)
Quarter: 2023Q2

REPORT INFORMATION
  Report Type: Spontaneous
  Country: US (occurrence: None)
  Receive Date: 20230629
  Receipt Date: 20230629
  Transmission Date: 20230722
  Serious: Yes (Other)
  Sender: FDA-Public Use
  Company Number: None

PATIENT
  Age: 19 Year
  Sex: Male
  Weight: 71.4 kg

DRUGS (1)
  1. HEMLIBRA [Suspect]
     Active Substance: EMICIZUMAB-KXWH
     Dosage: FREQUENCY : WEEKLY;?
     Route: 058

REACTIONS (3)
  - Wisdom teeth removal [None]
  - Post procedural complication [None]
  - Wound secretion [None]

NARRATIVE: CASE EVENT DATE: 20230111
